FAERS Safety Report 5227871-3 (Version None)
Quarter: 2007Q1

REPORT INFORMATION
  Report Type: 
  Country: None (occurrence: None)
  Receive Date: 20070202
  Receipt Date: 20070124
  Transmission Date: 20070707
  Serious: Yes (Death)
  Sender: FDA-Public Use
  Company Number: IN-PFIZER INC-2007003598

PATIENT
  Sex: Male
  Weight: 65 kg

DRUGS (1)
  1. SU-011,248 [Suspect]
     Indication: RENAL CELL CARCINOMA STAGE UNSPECIFIED
     Route: 048
     Dates: start: 20061214, end: 20070108

REACTIONS (3)
  - DEATH [None]
  - LEUKOPENIA [None]
  - RESPIRATORY TRACT INFECTION [None]
